FAERS Safety Report 4287893-6 (Version None)
Quarter: 2004Q1

REPORT INFORMATION
  Report Type: 
  Country: None (occurrence: None)
  Receive Date: 20040209
  Receipt Date: 20031024
  Transmission Date: 20041129
  Serious: No
  Sender: FDA-Public Use
  Company Number: US-GLAXOSMITHKLINE-A0431535A

PATIENT
  Sex: Female

DRUGS (4)
  1. PAXIL [Suspect]
     Route: 048
     Dates: start: 20030919
  2. ACCUPRIL [Concomitant]
  3. EVISTA [Concomitant]
  4. ZOCOR [Concomitant]

REACTIONS (2)
  - CRYING [None]
  - ILL-DEFINED DISORDER [None]
